FAERS Safety Report 8554205-9 (Version None)
Quarter: 2012Q3

REPORT INFORMATION
  Report Type: 
  Country: None (occurrence: None)
  Receive Date: 20120731
  Receipt Date: 20120720
  Transmission Date: 20120928
  Serious: Yes (Other)
  Sender: FDA-Public Use
  Company Number: HU-ELI_LILLY_AND_COMPANY-HU201207007142

PATIENT
  Age: 15 Year
  Sex: Female
  Weight: 53 kg

DRUGS (4)
  1. ESTROGEN [Concomitant]
  2. HALOPERIDOL [Concomitant]
     Indication: AGITATION
  3. HUMATROPE [Suspect]
     Indication: TURNER'S SYNDROME
     Dosage: UNK
     Dates: start: 20040101
  4. VALPROATE SODIUM [Concomitant]
     Indication: EPILEPSY

REACTIONS (1)
  - ENCEPHALOPATHY [None]
